FAERS Safety Report 25317661 (Version 1)
Quarter: 2025Q2

REPORT INFORMATION
  Report Type: Spontaneous
  Country: SY (occurrence: SY)
  Receive Date: 20250515
  Receipt Date: 20250515
  Transmission Date: 20250716
  Serious: No
  Sender: ALKEM
  Company Number: SY-ALKEM LABORATORIES LIMITED-SY-ALKEM-2024-23473

PATIENT
  Age: 36 Year
  Sex: Male

DRUGS (7)
  1. AZATHIOPRINE [Suspect]
     Active Substance: AZATHIOPRINE
     Indication: PASH syndrome
     Dosage: 150 MILLIGRAM, QD
     Route: 065
  2. ADALIMUMAB [Suspect]
     Active Substance: ADALIMUMAB
     Indication: PASH syndrome
     Route: 065
  3. ADALIMUMAB [Suspect]
     Active Substance: ADALIMUMAB
     Route: 065
  4. ADALIMUMAB [Suspect]
     Active Substance: ADALIMUMAB
     Route: 065
  5. CYCLOSPORINE [Suspect]
     Active Substance: CYCLOSPORINE
     Indication: PASH syndrome
     Route: 065
  6. DAPSONE [Suspect]
     Active Substance: DAPSONE
     Indication: PASH syndrome
     Route: 061
  7. ISOTRETINOIN [Suspect]
     Active Substance: ISOTRETINOIN
     Indication: PASH syndrome
     Route: 065

REACTIONS (1)
  - Therapy partial responder [Unknown]
